FAERS Safety Report 10432411 (Version 1)
Quarter: 2014Q3

REPORT INFORMATION
  Report Type: Spontaneous
  Country: US (occurrence: None)
  Receive Date: 20140904
  Receipt Date: 20140904
  Transmission Date: 20150326
  Serious: Yes (Disabling, Other)
  Sender: FDA-Public Use
  Company Number: None

PATIENT
  Age: 65 Year
  Sex: Female
  Weight: 104.33 kg

DRUGS (1)
  1. CIPROFLOXACIN. [Suspect]
     Active Substance: CIPROFLOXACIN
     Indication: URINARY TRACT INFECTION
     Dosage: 500MG ONCE DAILY FOR 7 DAYS.

REACTIONS (11)
  - Dysstasia [None]
  - Inflammation [None]
  - No therapeutic response [None]
  - Peroneal nerve injury [None]
  - Fibromyalgia [None]
  - Arthralgia [None]
  - Insomnia [None]
  - Quality of life decreased [None]
  - Pain in extremity [None]
  - Peripheral venous disease [None]
  - Feeling abnormal [None]

NARRATIVE: CASE EVENT DATE: 20140219
